FAERS Safety Report 8136712-6 (Version None)
Quarter: 2012Q1

REPORT INFORMATION
  Report Type: 
  Country: None (occurrence: None)
  Receive Date: 20120214
  Receipt Date: 20120210
  Transmission Date: 20120608
  Serious: Yes (Other)
  Sender: FDA-Public Use
  Company Number: US-BAYER-2012-014248

PATIENT
  Age: 23 Year
  Sex: Male
  Weight: 82 kg

DRUGS (1)
  1. ALEVE (CAPLET) [Suspect]
     Indication: ANALGESIC THERAPY
     Dosage: 1 DF, ONCE
     Route: 048

REACTIONS (5)
  - LIP SWELLING [None]
  - URTICARIA [None]
  - PARAESTHESIA ORAL [None]
  - HYPERSENSITIVITY [None]
  - SKIN DISCOLOURATION [None]
